FAERS Safety Report 5239588-X (Version None)
Quarter: 2007Q1

REPORT INFORMATION
  Report Type: 
  Country: None (occurrence: None)
  Receive Date: 20070216
  Receipt Date: 20061226
  Transmission Date: 20070707
  Serious: Yes (Death, Hospitalization, Other)
  Sender: FDA-Public Use
  Company Number: 2006SE06377

PATIENT
  Age: 67 Year
  Sex: Male
  Weight: 81 kg

DRUGS (7)
  1. CRESTOR [Suspect]
     Indication: ARTERIOSCLEROSIS
     Route: 048
     Dates: start: 20061101, end: 20061103
  2. CRESTOR [Suspect]
     Route: 048
     Dates: start: 20061104, end: 20061105
  3. CRESTOR [Suspect]
     Route: 048
     Dates: start: 20061106, end: 20061112
  4. ISOSORBID 5-MONOHYDRATE [Concomitant]
     Indication: CORONARY ARTERY DISEASE
     Route: 048
  5. ACETYLSALICYLIC ACID SRT [Concomitant]
     Indication: CORONARY ARTERY DISEASE
     Route: 048
  6. BISOPROLOL FUMARATE [Concomitant]
  7. BISOPROLOL FUMARATE [Concomitant]

REACTIONS (6)
  - ANGINA PECTORIS [None]
  - ERYTHEMA [None]
  - GASTROINTESTINAL HAEMORRHAGE [None]
  - MYALGIA [None]
  - RESPIRATORY FAILURE [None]
  - RHABDOMYOLYSIS [None]
